FAERS Safety Report 5132348-X (Version None)
Quarter: 2006Q4

REPORT INFORMATION
  Report Type: 
  Country: None (occurrence: None)
  Receive Date: 20061023
  Receipt Date: 20060822
  Transmission Date: 20070319
  Serious: Yes (Other)
  Sender: FDA-Public Use
  Company Number: US-BAYER-200613540BCC

PATIENT
  Age: 69 Year
  Sex: Male
  Weight: 73 kg

DRUGS (9)
  1. ALEVE [Suspect]
     Indication: ARTHRALGIA
     Dosage: TOTAL DAILY DOSE: 220 MG  UNIT DOSE: 220 MG
     Route: 048
  2. CARBIDOPA W/LEVODOPA [Concomitant]
  3. EFFEXOR XR [Concomitant]
  4. WELLBUTRIN [Concomitant]
  5. FISH OIL [Concomitant]
  6. CENTRUM [Concomitant]
  7. ASCORBIC ACID [Concomitant]
  8. COQ10 [Concomitant]
  9. GLUCOSAMINE CHONDROITIN [Concomitant]
     Dates: start: 20050101

REACTIONS (9)
  - AMNESIA [None]
  - CHEST DISCOMFORT [None]
  - CONSTIPATION [None]
  - DRY MOUTH [None]
  - PARKINSON'S DISEASE [None]
  - RESORPTION BONE INCREASED [None]
  - STRESS [None]
  - TOOTH LOSS [None]
  - WEIGHT DECREASED [None]
